FAERS Safety Report 10911985 (Version 9)
Quarter: 2015Q3

REPORT INFORMATION
  Report Type: Report from Study
  Country: US (occurrence: US)
  Receive Date: 20150313
  Receipt Date: 20150728
  Transmission Date: 20151125
  Serious: Yes (Death, Hospitalization)
  Sender: FDA-Public Use
  Company Number: US-PFIZER INC-2015035083

PATIENT
  Age: 57 Year
  Sex: Male
  Weight: 73 kg

DRUGS (8)
  1. ZOFRAN [Suspect]
     Active Substance: ONDANSETRON HYDROCHLORIDE
     Dosage: UNK
     Route: 048
     Dates: end: 20150105
  2. ZOFRAN [Suspect]
     Active Substance: ONDANSETRON HYDROCHLORIDE
     Dosage: 4 MG, Q6HRS AS NEEDED
     Route: 042
     Dates: start: 20150116, end: 20150128
  3. OXYCONTIN [Suspect]
     Active Substance: OXYCODONE HYDROCHLORIDE
     Indication: PAIN MANAGEMENT
     Dosage: UNK
     Route: 048
     Dates: start: 201408
  4. MEGACE [Concomitant]
     Active Substance: MEGESTROL ACETATE
  5. PALBOCICLIB [Suspect]
     Active Substance: PALBOCICLIB
     Indication: SQUAMOUS CELL CARCINOMA OF LUNG
     Dosage: 125 MG, QD ON DAYS 1-21 (CYCLE 28 DAYS)
     Route: 048
     Dates: start: 20150113, end: 20150123
  6. COMPAZINE [Concomitant]
     Active Substance: PROCHLORPERAZINE MALEATE
  7. NORCO [Suspect]
     Active Substance: ACETAMINOPHEN\HYDROCODONE BITARTRATE
     Dosage: 7.5 MG, AS NEEDED
     Route: 048
     Dates: start: 201408
  8. ATIVAN [Concomitant]
     Active Substance: LORAZEPAM

REACTIONS (6)
  - Platelet count decreased [Recovered/Resolved]
  - Squamous cell carcinoma of lung [Fatal]
  - Leukocytosis [Recovered/Resolved]
  - Nausea [Not Recovered/Not Resolved]
  - Disease progression [Fatal]
  - Vomiting [Not Recovered/Not Resolved]

NARRATIVE: CASE EVENT DATE: 20150113
